FAERS Safety Report 11090226 (Version 2)
Quarter: 2015Q2

REPORT INFORMATION
  Report Type: Report from Study
  Country: US (occurrence: US)
  Receive Date: 20150505
  Receipt Date: 20150611
  Transmission Date: 20150821
  Serious: Yes (Hospitalization)
  Sender: FDA-Public Use
  Company Number: US-MERCK-1505USA000540

PATIENT
  Age: 61 Year
  Weight: 72.6 kg

DRUGS (1)
  1. ZOLINZA [Suspect]
     Active Substance: VORINOSTAT
     Indication: MYCOSIS FUNGOIDES
     Dosage: 400 MG, QD
     Route: 048
     Dates: start: 20150204, end: 20150416

REACTIONS (16)
  - Protein total decreased [Unknown]
  - Blood sodium decreased [Unknown]
  - Chills [Unknown]
  - Pollakiuria [Unknown]
  - Pyrexia [Unknown]
  - Cholangitis acute [Unknown]
  - Urine output decreased [Unknown]
  - Jaundice [Unknown]
  - Food intolerance [Unknown]
  - Localised infection [Unknown]
  - Abnormal loss of weight [Recovered/Resolved]
  - Asthenia [Unknown]
  - Liver function test abnormal [Not Recovered/Not Resolved]
  - Abdominal pain [Recovered/Resolved]
  - Lethargy [Unknown]
  - Toxicity to various agents [Unknown]

NARRATIVE: CASE EVENT DATE: 201504
